FAERS Safety Report 4414232-X (Version None)
Quarter: 2004Q3

REPORT INFORMATION
  Report Type: 
  Country: None (occurrence: None)
  Receive Date: 20040728
  Receipt Date: 20040712
  Transmission Date: 20050211
  Serious: Yes (Hospitalization)
  Sender: FDA-Public Use
  Company Number: F02200300121

PATIENT
  Age: 67 Year
  Sex: Male

DRUGS (3)
  1. XATRAL          (ALFUZOSIN) [Suspect]
     Indication: BENIGN PROSTATIC HYPERPLASIA
     Dosage: SEE IMAGE
     Route: 048
     Dates: start: 20040219, end: 20040101
  2. XATRAL          (ALFUZOSIN) [Suspect]
     Indication: BENIGN PROSTATIC HYPERPLASIA
     Dosage: SEE IMAGE
     Route: 048
     Dates: start: 20040101, end: 20040423
  3. SERETIDE (FLUTICASONE/SALMETEROL) [Concomitant]

REACTIONS (7)
  - ANAEMIA [None]
  - DYSURIA [None]
  - GENERAL PHYSICAL HEALTH DETERIORATION [None]
  - LYMPHADENOPATHY MEDIASTINAL [None]
  - MEDIASTINUM NEOPLASM [None]
  - METASTASES TO LIVER [None]
  - SMALL CELL LUNG CANCER METASTATIC [None]
